FAERS Safety Report 6443760-0 (Version None)
Quarter: 2009Q4

REPORT INFORMATION
  Report Type: 
  Country: None (occurrence: None)
  Receive Date: 20091117
  Receipt Date: 20091106
  Transmission Date: 20100525
  Serious: Yes (Hospitalization)
  Sender: FDA-Public Use
  Company Number: JP-BAXTER-2009BH017225

PATIENT
  Sex: Female
  Weight: 56 kg

DRUGS (3)
  1. EXTRANEAL [Suspect]
     Indication: GLOMERULONEPHRITIS CHRONIC
     Route: 033
  2. DIANEAL PD-2 W/ DEXTROSE 1.5% [Suspect]
     Indication: GLOMERULONEPHRITIS CHRONIC
     Route: 033
  3. DIANEAL PD-2 W/ DEXTROSE 1.5% [Suspect]
     Indication: GLOMERULONEPHRITIS CHRONIC
     Route: 033

REACTIONS (1)
  - BLOOD PRESSURE FLUCTUATION [None]
